FAERS Safety Report 5642714-1 (Version None)
Quarter: 2008Q1

REPORT INFORMATION
  Report Type: 
  Country: None (occurrence: None)
  Receive Date: 20080227
  Receipt Date: 20080227
  Transmission Date: 20080703
  Serious: Yes (Hospitalization)
  Sender: FDA-Public Use
  Company Number: None

PATIENT
  Sex: Female
  Weight: 144.2439 kg

DRUGS (3)
  1. KEFLEX [Suspect]
     Indication: ANTI-INFECTIVE THERAPY
     Dosage: PO  (THERAPY DATES: PRIOR TO ADMISSION)
     Route: 048
  2. LASIX [Concomitant]
  3. TAPAZOLE [Concomitant]

REACTIONS (7)
  - DYSPNOEA [None]
  - FACE OEDEMA [None]
  - NO THERAPEUTIC RESPONSE [None]
  - PRURITUS [None]
  - RASH GENERALISED [None]
  - RASH PAPULAR [None]
  - SCAB [None]
